FAERS Safety Report 8076732-3 (Version None)
Quarter: 2012Q1

REPORT INFORMATION
  Report Type: 
  Country: None (occurrence: None)
  Receive Date: 20120127
  Receipt Date: 20120124
  Transmission Date: 20120608
  Serious: Yes (Other)
  Sender: FDA-Public Use
  Company Number: CHPA2012US001925

PATIENT
  Sex: Female

DRUGS (1)
  1. EXCEDRIN (MIGRAINE) [Suspect]
     Indication: MIGRAINE
     Dosage: UNK DF, UNK

REACTIONS (4)
  - MYDRIASIS [None]
  - PRODUCT FORMULATION ISSUE [None]
  - DRUG SCREEN POSITIVE [None]
  - SOMNOLENCE [None]
